FAERS Safety Report 17671980 (Version 1)
Quarter: 2020Q2

REPORT INFORMATION
  Report Type: Spontaneous
  Country: BE (occurrence: BE)
  Receive Date: 20200415
  Receipt Date: 20200415
  Transmission Date: 20200713
  Serious: No
  Sender: FDA-Public Use
  Company Number: BE-EMD SERONO-9155895

PATIENT
  Age: 26 Year
  Sex: Female

DRUGS (1)
  1. MAVENCLAD [Suspect]
     Active Substance: CLADRIBINE
     Indication: MULTIPLE SCLEROSIS

REACTIONS (3)
  - Respiratory symptom [Recovered/Resolved]
  - Coronavirus infection [Unknown]
  - Exposure to communicable disease [Unknown]
